FAERS Safety Report 5397300-8 (Version None)
Quarter: 2007Q3

REPORT INFORMATION
  Report Type: 
  Country: None (occurrence: None)
  Receive Date: 20070723
  Receipt Date: 20070706
  Transmission Date: 20080115
  Serious: Yes (Hospitalization)
  Sender: FDA-Public Use
  Company Number: 2007BM000076

PATIENT
  Age: 3 Year
  Sex: Male
  Weight: 11 kg

DRUGS (5)
  1. NAGLAZYME (GALSULFASE) SOLUTION (EXCEPT SYRUP), 1.0MG/ML (NAGLAZYME (G [Suspect]
     Indication: MUCOPOLYSACCHARIDOSIS VI
     Dosage: 10 MG, QW; IV
     Route: 042
     Dates: start: 20070525
  2. BETA 2 AGONIST [Concomitant]
  3. BRONCHLODIALTOR [Concomitant]
  4. OXYGEN [Concomitant]
  5. FUROSEMIDE [Concomitant]

REACTIONS (6)
  - ALPHA HAEMOLYTIC STREPTOCOCCAL INFECTION [None]
  - CARDIAC FAILURE CONGESTIVE [None]
  - CULTURE POSITIVE [None]
  - PNEUMONIA [None]
  - PULMONARY HYPERTENSION [None]
  - STAPHYLOCOCCAL INFECTION [None]
